FAERS Safety Report 8889270 (Version 2)
Quarter: 2015Q3

REPORT INFORMATION
  Report Type: Report from Study
  Country: US (occurrence: US)
  Receive Date: 20121106
  Receipt Date: 20150813
  Transmission Date: 20151125
  Serious: Yes (Death, Other)
  Sender: FDA-Public Use
  Company Number: US-ROCHE-1097071

PATIENT
  Sex: Male

DRUGS (3)
  1. NUTROPIN AQ [Suspect]
     Active Substance: SOMATROPIN
     Route: 058
  2. NUTROPIN AQ [Suspect]
     Active Substance: SOMATROPIN
     Route: 058
  3. NUTROPIN AQ [Suspect]
     Active Substance: SOMATROPIN
     Indication: DWARFISM
     Route: 058
     Dates: start: 20001109

REACTIONS (4)
  - Pain [Unknown]
  - Respiratory arrest [Fatal]
  - Hypoglycaemic seizure [Unknown]
  - Feeling abnormal [Unknown]
